FAERS Safety Report 8244932-5 (Version None)
Quarter: 2012Q1

REPORT INFORMATION
  Report Type: 
  Country: None (occurrence: None)
  Receive Date: 20120329
  Receipt Date: 20110923
  Transmission Date: 20120608
  Serious: No
  Sender: FDA-Public Use
  Company Number: US-MYLANLABS-2011S1019958

PATIENT
  Age: 45 Year
  Sex: Female

DRUGS (1)
  1. FENTANYL-100 [Suspect]
     Indication: PAIN IN EXTREMITY
     Dosage: Q72H
     Route: 062
     Dates: start: 20110301, end: 20110301

REACTIONS (3)
  - APPLICATION SITE RASH [None]
  - APPLICATION SITE VESICLES [None]
  - RASH [None]
